FAERS Safety Report 10023920 (Version 1)
Quarter: 2014Q1

REPORT INFORMATION
  Report Type: Spontaneous
  Country: US (occurrence: None)
  Receive Date: 20140319
  Receipt Date: 20140319
  Transmission Date: 20141002
  Serious: Yes (Disabling, Other)
  Sender: FDA-Public Use
  Company Number: None

PATIENT
  Age: 57 Year
  Sex: Female
  Weight: 54.43 kg

DRUGS (6)
  1. VENLAFAXINE [Suspect]
     Indication: BIPOLAR DISORDER
     Dosage: 75 MG TOTAL 300 MG 4 CAPSULES 3 IN THE AM ONE IN PM ORAL CAPSULES
     Route: 048
     Dates: start: 20090218
  2. GABAPENTIN [Concomitant]
  3. SYNTHROID [Concomitant]
  4. VALTREX [Concomitant]
  5. EFFEXOR XR [Concomitant]
  6. MOTRIN [Concomitant]

REACTIONS (3)
  - Crying [None]
  - Irritability [None]
  - Depression [None]
